FAERS Safety Report 7438607-X (Version None)
Quarter: 2011Q2

REPORT INFORMATION
  Report Type: 
  Country: None (occurrence: None)
  Receive Date: 20110426
  Receipt Date: 20110421
  Transmission Date: 20111010
  Serious: Yes (Hospitalization)
  Sender: FDA-Public Use
  Company Number: US-PFIZER INC-2010017414

PATIENT
  Age: 76 Year
  Sex: Female

DRUGS (9)
  1. PROTONIX [Suspect]
     Dosage: UNK
  2. SYNTHROID [Suspect]
  3. AMBIEN [Suspect]
  4. EFFEXOR [Suspect]
  5. MIRALAX [Suspect]
  6. DASATINIB [Suspect]
     Indication: BREAST CANCER METASTATIC
     Dosage: 100 MG, 1 DAY
     Route: 048
     Dates: start: 20091030, end: 20091215
  7. DASATINIB [Suspect]
     Dosage: 70 MG, 1X/DAY
     Route: 048
     Dates: start: 20091216, end: 20100105
  8. XANAX [Suspect]
  9. OXYCODONE [Suspect]

REACTIONS (1)
  - ESCHERICHIA URINARY TRACT INFECTION [None]
